FAERS Safety Report 19964395 (Version 1)
Quarter: 2021Q4

REPORT INFORMATION
  Report Type: Spontaneous
  Country: US (occurrence: US)
  Receive Date: 20211018
  Receipt Date: 20211018
  Transmission Date: 20220303
  Serious: Yes (Other)
  Sender: FDA-Public Use
  Company Number: None

PATIENT
  Age: 30 Year
  Sex: Male
  Weight: 131 kg

DRUGS (4)
  1. BARICITINIB [Suspect]
     Active Substance: BARICITINIB
     Dates: start: 20211009, end: 20211011
  2. REMDESIVIR [Suspect]
     Active Substance: REMDESIVIR
     Dates: start: 20211009, end: 20211011
  3. BARICITINIB [Concomitant]
     Active Substance: BARICITINIB
     Dates: start: 20211009, end: 20211011
  4. REMDESIVIR [Concomitant]
     Active Substance: REMDESIVIR
     Dates: start: 20211009, end: 20211011

REACTIONS (1)
  - Electrocardiogram QT prolonged [None]

NARRATIVE: CASE EVENT DATE: 20211011
